FAERS Safety Report 15524507 (Version 2)
Quarter: 2018Q4

REPORT INFORMATION
  Report Type: Spontaneous
  Country: US (occurrence: US)
  Receive Date: 20181018
  Receipt Date: 20181130
  Transmission Date: 20190205
  Serious: No
  Sender: FDA-Public Use
  Company Number: US-PFIZER INC-2018209719

PATIENT
  Age: 53 Year
  Sex: Female
  Weight: 65.76 kg

DRUGS (2)
  1. GENOTROPIN MQ [Suspect]
     Active Substance: SOMATROPIN
     Indication: HYPOPITUITARISM
  2. GENOTROPIN MQ [Suspect]
     Active Substance: SOMATROPIN
     Indication: GROWTH HORMONE DEFICIENCY
     Dosage: 0.6 MG, 1X/DAY
     Route: 058
     Dates: start: 201712

REACTIONS (4)
  - Myalgia [Unknown]
  - Malaise [Unknown]
  - Muscular weakness [Unknown]
  - Arthralgia [Unknown]
